FAERS Safety Report 24079809 (Version 3)
Quarter: 2025Q3

REPORT INFORMATION
  Report Type: Report from Study
  Country: TH (occurrence: TH)
  Receive Date: 20240711
  Receipt Date: 20250809
  Transmission Date: 20251020
  Serious: Yes (Death, Hospitalization, Other)
  Sender: ALEXION PHARMACEUTICALS
  Company Number: 2023A054410

PATIENT
  Age: 78 Year
  Sex: Female

DRUGS (3)
  1. TAGRISSO [Suspect]
     Active Substance: OSIMERTINIB
     Indication: Non-small cell lung cancer metastatic
     Dosage: 80 MILLIGRAM, QD
     Dates: start: 20211109, end: 20230228
  2. TAGRISSO [Suspect]
     Active Substance: OSIMERTINIB
     Dosage: 80 MILLIGRAM, QOD
     Dates: start: 20230228
  3. TAGRISSO [Suspect]
     Active Substance: OSIMERTINIB
     Dosage: 80 MILLIGRAM, QD
     Dates: start: 20240704

REACTIONS (7)
  - Pneumonia [Fatal]
  - Lung cancer metastatic [Fatal]
  - Headache [Not Recovered/Not Resolved]
  - Fall [Unknown]
  - Upper limb fracture [Unknown]
  - Accident [Unknown]
  - Off label use [Unknown]

NARRATIVE: CASE EVENT DATE: 20230101
